FAERS Safety Report 17652049 (Version 1)
Quarter: 2020Q2

REPORT INFORMATION
  Report Type: Spontaneous
  Country: CN (occurrence: CN)
  Receive Date: 20200409
  Receipt Date: 20200409
  Transmission Date: 20200713
  Serious: Yes (Hospitalization)
  Sender: FDA-Public Use
  Company Number: CN-ASTRAZENECA-2020SE48251

PATIENT
  Age: 15479 Day
  Sex: Female
  Weight: 56 kg

DRUGS (5)
  1. OLAPARIB. [Suspect]
     Active Substance: OLAPARIB
     Indication: BREAST CANCER
     Route: 048
     Dates: start: 20200217, end: 20200304
  2. AVASTIN [Suspect]
     Active Substance: BEVACIZUMAB
     Indication: BREAST CANCER
     Dosage: (100MG/4ML1 BOTTLE), 800 MG ONCE
     Route: 041
     Dates: start: 20200217, end: 20200217
  3. ZOLADEX [Suspect]
     Active Substance: GOSERELIN ACETATE
     Indication: BREAST CANCER
     Route: 058
     Dates: start: 20200217, end: 20200217
  4. PARAPLATIN [Suspect]
     Active Substance: CARBOPLATIN
     Indication: BREAST CANCER
     Dosage: (150MG/15ML 1 PIECE) 300 MG ONCE
     Route: 041
     Dates: start: 20200224, end: 20200224
  5. PARAPLATIN [Suspect]
     Active Substance: CARBOPLATIN
     Indication: BREAST CANCER
     Dosage: (150MG/15ML 1 PIECE) 300 MG ONCE
     Route: 041
     Dates: start: 20200217, end: 20200217

REACTIONS (1)
  - Bone marrow failure [Recovering/Resolving]

NARRATIVE: CASE EVENT DATE: 20200304
